FAERS Safety Report 5446240-4 (Version None)
Quarter: 2007Q3

REPORT INFORMATION
  Report Type: 
  Country: None (occurrence: None)
  Receive Date: 20070731
  Receipt Date: 20070326
  Transmission Date: 20080115
  Serious: Yes (Other)
  Sender: FDA-Public Use
  Company Number: US-2007-010804

PATIENT
  Age: 41 Year
  Sex: Female
  Weight: 85.7 kg

DRUGS (2)
  1. MAGNEVIST [Suspect]
     Indication: NUCLEAR MAGNETIC RESONANCE IMAGING BRAIN
     Dosage: 18 ML, 1 DOSE, INTRAVENOUS
     Route: 042
     Dates: start: 20070308, end: 20070308
  2. TYLENOL (CAPLET) [Concomitant]

REACTIONS (3)
  - AGITATION [None]
  - PHARYNGOLARYNGEAL DISCOMFORT [None]
  - PRURITUS [None]
